FAERS Safety Report 14017058 (Version 3)
Quarter: 2020Q3

REPORT INFORMATION
  Report Type: Report from Study
  Country: DE (occurrence: DE)
  Receive Date: 20170927
  Receipt Date: 20200818
  Transmission Date: 20201102
  Serious: Yes (Other)
  Sender: FDA-Public Use
  Company Number: DE-TEVA-805849GER

PATIENT
  Age: 65 Year
  Sex: Male
  Weight: 90 kg

DRUGS (9)
  1. NATRIUMFLUORID [Concomitant]
     Dosage: 25 MILLIGRAM DAILY;
     Dates: start: 20150821
  2. MYFENAX [Suspect]
     Active Substance: MYCOPHENOLATE MOFETIL
     Dosage: 1000 MILLIGRAM DAILY;
     Route: 048
     Dates: start: 20161031, end: 20170510
  3. SALBUHEXAL [Concomitant]
     Active Substance: ALBUTEROL
     Indication: CHRONIC OBSTRUCTIVE PULMONARY DISEASE
     Dates: start: 20100101
  4. ROCALTROL [Concomitant]
     Active Substance: CALCITRIOL
     Indication: OSTEOPENIA
     Dosage: .25 MICROGRAM DAILY;
     Dates: start: 20150821
  5. ALLOPURINOL. [Concomitant]
     Active Substance: ALLOPURINOL
     Indication: GOUT
     Dosage: 100 MILLIGRAM DAILY;
     Dates: start: 20170403
  6. CANDESARTAN. [Concomitant]
     Active Substance: CANDESARTAN
     Indication: HYPERTENSION
     Dosage: 8 MILLIGRAM DAILY;
     Dates: start: 20170221
  7. URSOFALK [Concomitant]
     Active Substance: URSODIOL
     Indication: PROPHYLAXIS
     Dosage: 500 MILLIGRAM DAILY;
     Dates: start: 20150211
  8. METFORMIN [Concomitant]
     Active Substance: METFORMIN HYDROCHLORIDE
     Indication: DIABETES MELLITUS
     Dosage: 500 MILLIGRAM DAILY;
     Dates: start: 20070101
  9. SALBUHEXAL [Concomitant]
     Active Substance: ALBUTEROL
     Indication: ASTHMA

REACTIONS (3)
  - Defaecation urgency [Recovered/Resolved]
  - Gout [Not Recovered/Not Resolved]
  - Diarrhoea [Recovered/Resolved]

NARRATIVE: CASE EVENT DATE: 20170315
